FAERS Safety Report 6659903-X (Version None)
Quarter: 2010Q1

REPORT INFORMATION
  Report Type: 
  Country: None (occurrence: None)
  Receive Date: 20100330
  Receipt Date: 20100330
  Transmission Date: 20100710
  Serious: Yes (Hospitalization)
  Sender: FDA-Public Use
  Company Number: None

PATIENT
  Age: 52 Year
  Sex: Female
  Weight: 70.3075 kg

DRUGS (1)
  1. BONIVA [Suspect]
     Indication: OSTEOPENIA
     Dosage: ONCE A MONTH
     Dates: start: 20091001, end: 20100302

REACTIONS (5)
  - DIZZINESS [None]
  - HEADACHE [None]
  - MIGRAINE [None]
  - MIGRAINE WITH AURA [None]
  - VOMITING [None]
